FAERS Safety Report 4398746-7 (Version None)
Quarter: 2004Q3

REPORT INFORMATION
  Report Type: 
  Country: None (occurrence: None)
  Receive Date: 20040712
  Receipt Date: 20040621
  Transmission Date: 20050211
  Serious: Yes (Death)
  Sender: FDA-Public Use
  Company Number: JP_040603413

PATIENT
  Age: 64 Year
  Sex: Male
  Weight: 55 kg

DRUGS (8)
  1. ZYPREXA [Suspect]
     Indication: SCHIZOPHRENIA
     Dates: start: 20040311
  2. LULLAN (PEROSPIRONE HYDROCHLORIDE) [Concomitant]
  3. AKINETON [Concomitant]
  4. DIAZEPAM [Concomitant]
  5. NITOROL -SLOW RELEASE (ISOSORBIDE DINITRATE) [Concomitant]
  6. ISALON (ALDIOXA) [Concomitant]
  7. SLOW-K [Concomitant]
  8. SOLITA T [Concomitant]

REACTIONS (2)
  - ACUTE MYOCARDIAL INFARCTION [None]
  - LOSS OF CONSCIOUSNESS [None]
